FAERS Safety Report 12453700 (Version 2)
Quarter: 2016Q2

REPORT INFORMATION
  Report Type: Report from Study
  Country: TW (occurrence: TW)
  Receive Date: 20160609
  Receipt Date: 20160630
  Transmission Date: 20160815
  Serious: Yes (Life-Threatening, Other)
  Sender: FDA-Public Use
  Company Number: TW-ABBVIE-16K-153-1645022-00

PATIENT
  Age: 30 Year
  Sex: Male
  Weight: 55 kg

DRUGS (3)
  1. HUMIRA [Suspect]
     Active Substance: ADALIMUMAB
     Indication: ANKYLOSING SPONDYLITIS
     Route: 058
     Dates: start: 20090930, end: 20160302
  2. SULFASALAZINE. [Concomitant]
     Active Substance: SULFASALAZINE
     Indication: ANKYLOSING SPONDYLITIS
     Route: 048
     Dates: start: 20130605
  3. TRAMADOL. [Concomitant]
     Active Substance: TRAMADOL
     Indication: ANKYLOSING SPONDYLITIS
     Route: 048
     Dates: start: 20140205

REACTIONS (12)
  - Renal arteriosclerosis [Unknown]
  - Renal failure [Not Recovered/Not Resolved]
  - Lupus-like syndrome [Not Recovered/Not Resolved]
  - Renal cyst [Unknown]
  - Hypertension [Recovering/Resolving]
  - Nephrolithiasis [Unknown]
  - Kidney fibrosis [Unknown]
  - IgM nephropathy [Unknown]
  - Tubulointerstitial nephritis [Unknown]
  - Focal segmental glomerulosclerosis [Unknown]
  - Renal tubular atrophy [Unknown]
  - Lymphocytic infiltration [Unknown]

NARRATIVE: CASE EVENT DATE: 20120225
